FAERS Safety Report 10690533 (Version 1)
Quarter: 2015Q1

REPORT INFORMATION
  Report Type: Spontaneous
  Country: NZ (occurrence: None)
  Receive Date: 20150102
  Receipt Date: 20150102
  Transmission Date: 20150720
  Serious: Yes (Other)
  Sender: FDA-Public Use
  Company Number: NZ-MDCO-14-00363

PATIENT

DRUGS (2)
  1. ANGIOMAX [Suspect]
     Active Substance: BIVALIRUDIN
     Indication: HAEMODIALYSIS
     Route: 041
  2. WARFARIN (WARFARIN) (WARFARIN) [Suspect]
     Active Substance: WARFARIN
     Indication: HAEMODIALYSIS

REACTIONS (1)
  - Thrombosis in device [None]
